FAERS Safety Report 6721467-X (Version None)
Quarter: 2010Q2

REPORT INFORMATION
  Report Type: 
  Country: None (occurrence: None)
  Receive Date: 20100510
  Receipt Date: 20100428
  Transmission Date: 20101027
  Serious: Yes (Hospitalization)
  Sender: FDA-Public Use
  Company Number: 2010SP024532

PATIENT
  Age: 48 Year
  Sex: Male

DRUGS (6)
  1. PEGINTERFERON ALFA-2A [Suspect]
     Indication: HEPATITIS C
     Dosage: ;SC
     Route: 058
  2. RIBAVIRIN [Suspect]
     Indication: HEPATITIS C
     Dosage: ;PO
     Route: 048
  3. ELTROMBOPAG (ELTROMBOPAG) [Suspect]
     Indication: THROMBOCYTOPENIA
     Dosage: ;PO, 75 MG;QD;PO
     Route: 048
     Dates: start: 20100113, end: 20100209
  4. ELTROMBOPAG (ELTROMBOPAG) [Suspect]
     Indication: THROMBOCYTOPENIA
     Dosage: ;PO, 75 MG;QD;PO
     Route: 048
     Dates: start: 20100210, end: 20100223
  5. BLINDED ELTROMBOPAG (ELTROMBOPAG) [Suspect]
     Indication: THROMBOCYTOPENIA
     Dosage: 75 MG;QD;PO, 100 MG;QD;
     Route: 048
     Dates: start: 20100224, end: 20100302
  6. BLINDED ELTROMBOPAG (ELTROMBOPAG) [Suspect]
     Indication: THROMBOCYTOPENIA
     Dosage: 75 MG;QD;PO, 100 MG;QD;
     Route: 048
     Dates: start: 20100303

REACTIONS (2)
  - ILEITIS [None]
  - LYMPHADENITIS [None]
